FAERS Safety Report 10141745 (Version 2)
Quarter: 2014Q2

REPORT INFORMATION
  Report Type: Spontaneous
  Country: US (occurrence: US)
  Receive Date: 20140429
  Receipt Date: 20140429
  Transmission Date: 20141212
  Serious: Yes (Other)
  Sender: FDA-Public Use
  Company Number: US-B.I. PHARMACEUTICALS,INC./RIDGEFIELD-2013-BI-43845BP

PATIENT
  Age: 83 Year
  Sex: Female

DRUGS (2)
  1. DULCOLAX TABLETS [Suspect]
     Indication: CONSTIPATION
     Route: 048
     Dates: start: 2013
  2. DULCOLAX TABLETS FOR WOMEN [Suspect]
     Indication: CONSTIPATION
     Route: 048
     Dates: start: 2014

REACTIONS (6)
  - Cerebrovascular accident [Recovered/Resolved with Sequelae]
  - Disability [Not Recovered/Not Resolved]
  - Memory impairment [Not Recovered/Not Resolved]
  - Vocal cord paralysis [Not Recovered/Not Resolved]
  - Incorrect drug administration duration [Not Recovered/Not Resolved]
  - Drug ineffective [Recovered/Resolved]
